FAERS Safety Report 5619552-9 (Version None)
Quarter: 2008Q1

REPORT INFORMATION
  Report Type: 
  Country: None (occurrence: None)
  Receive Date: 20080205
  Receipt Date: 20080205
  Transmission Date: 20080703
  Serious: Yes (Life-Threatening, Hospitalization)
  Sender: FDA-Public Use
  Company Number: None

PATIENT
  Age: 40 Year
  Sex: Female
  Weight: 68.0396 kg

DRUGS (1)
  1. CEFDINIR [Suspect]
     Indication: UPPER RESPIRATORY TRACT INFECTION
     Dosage: 600 MG ONCE DAILY PO  1 DOSE TAKEN
     Route: 048
     Dates: start: 20080202, end: 20080202

REACTIONS (1)
  - ANAPHYLACTIC REACTION [None]
